FAERS Safety Report 20015813 (Version 1)
Quarter: 2021Q4

REPORT INFORMATION
  Report Type: Spontaneous
  Country: US (occurrence: None)
  Receive Date: 20211102
  Receipt Date: 20211102
  Transmission Date: 20220303
  Serious: Yes (Hospitalization)
  Sender: FDA-Public Use
  Company Number: None

PATIENT
  Age: 53 Year
  Sex: Male
  Weight: 105 kg

DRUGS (2)
  1. APIXABAN [Suspect]
     Active Substance: APIXABAN
     Indication: Cerebrovascular accident
     Dosage: FREQUENCY : TWICE A DAY;?
     Route: 048
     Dates: start: 20210812, end: 20211026
  2. CLOPIDOGREL BISULFATE [Suspect]
     Active Substance: CLOPIDOGREL BISULFATE
     Indication: Coronary artery disease
     Dosage: FREQUENCY : DAILY;?
     Route: 048
     Dates: start: 20210831

REACTIONS (4)
  - Head injury [None]
  - Haemorrhage intracranial [None]
  - Haemorrhagic stroke [None]
  - Therapy cessation [None]

NARRATIVE: CASE EVENT DATE: 20211025
